FAERS Safety Report 6686289-7 (Version None)
Quarter: 2010Q2

REPORT INFORMATION
  Report Type: 
  Country: None (occurrence: None)
  Receive Date: 20100414
  Receipt Date: 20100330
  Transmission Date: 20101027
  Serious: Yes (Other)
  Sender: FDA-Public Use
  Company Number: 007432

PATIENT
  Sex: Female

DRUGS (4)
  1. CIMZIA [Suspect]
     Indication: CROHN'S DISEASE
     Dosage: 400 MG 1X/MONTH SUBCUTANEOUS
     Route: 058
     Dates: start: 20090402
  2. PERCOCET-5 [Concomitant]
  3. MORPHINE [Concomitant]
  4. NORTRIPTYLINE HCL [Concomitant]

REACTIONS (6)
  - ABDOMINAL PAIN [None]
  - BACK PAIN [None]
  - CONDITION AGGRAVATED [None]
  - PAIN [None]
  - RENAL MASS [None]
  - UMBILICAL HERNIA [None]
